FAERS Safety Report 8818101 (Version 1)
Quarter: 2012Q4

REPORT INFORMATION
  Report Type: 
  Country: FR (occurrence: FR)
  Receive Date: 20121001
  Receipt Date: 20121001
  Transmission Date: 20130627
  Serious: Yes (Life-Threatening, Other)
  Sender: FDA-Public Use
  Company Number: FR-ASTRAZENECA-2012SE74619

PATIENT
  Age: 71 Year
  Sex: Female

DRUGS (6)
  1. ATACAND [Suspect]
     Route: 048
     Dates: end: 20120527
  2. METFORMINE BASE [Suspect]
     Indication: INSULIN-REQUIRING TYPE 2 DIABETES MELLITUS
     Route: 048
     Dates: end: 20120527
  3. VOLTARENE LP [Suspect]
     Indication: BACK PAIN
     Route: 048
     Dates: start: 20120522, end: 20120527
  4. LASILIX [Suspect]
     Route: 048
     Dates: end: 20120527
  5. LEVEMIR [Concomitant]
  6. VICTOZA [Concomitant]

REACTIONS (4)
  - Lactic acidosis [Recovered/Resolved]
  - Ejection fraction decreased [Unknown]
  - Renal failure [Recovered/Resolved]
  - Back pain [Unknown]
